FAERS Safety Report 5871542-7 (Version None)
Quarter: 2008Q3

REPORT INFORMATION
  Report Type: 
  Country: None (occurrence: None)
  Receive Date: 20080905
  Receipt Date: 20080409
  Transmission Date: 20090109
  Serious: No
  Sender: FDA-Public Use
  Company Number: A0721877A

PATIENT
  Age: 50 Year
  Sex: Female

DRUGS (4)
  1. REQUIP [Suspect]
     Indication: PARKINSON'S DISEASE
     Dosage: 3MG FOUR TIMES PER DAY
     Route: 048
  2. SINEMET [Concomitant]
  3. TENERAL [Concomitant]
  4. ALTACE [Concomitant]

REACTIONS (1)
  - PATHOLOGICAL GAMBLING [None]
